FAERS Safety Report 7049477-6 (Version None)
Quarter: 2010Q4

REPORT INFORMATION
  Report Type: 
  Country: None (occurrence: None)
  Receive Date: 20101012
  Receipt Date: 20100927
  Transmission Date: 20110411
  Serious: Yes (Life-Threatening, Hospitalization)
  Sender: FDA-Public Use
  Company Number: AUR-APL-2010-01612

PATIENT
  Age: 56 Year
  Sex: Male

DRUGS (8)
  1. PERINDOPRIL [Suspect]
     Indication: CEREBROVASCULAR ACCIDENT PROPHYLAXIS
     Dosage: 4MG,
  2. ATORVASTATIN [Suspect]
     Indication: CEREBROVASCULAR ACCIDENT PROPHYLAXIS
     Dosage: 20MG,
  3. INDAPAMIDE [Suspect]
     Indication: CEREBROVASCULAR ACCIDENT PROPHYLAXIS
     Dosage: 2.5MG
  4. RANITIDINE [Suspect]
     Indication: CEREBROVASCULAR ACCIDENT PROPHYLAXIS
     Dosage: 150MG - BID -
  5. ASPIRIN [Concomitant]
  6. EZETIMIBE [Concomitant]
  7. GLUCOSAMINE [Concomitant]
  8. NITROGLYCERIN [Concomitant]

REACTIONS (4)
  - DRUG HYPERSENSITIVITY [None]
  - HAEMODIALYSIS [None]
  - HYPOTENSION [None]
  - STEVENS-JOHNSON SYNDROME [None]
